FAERS Safety Report 15981253 (Version 1)
Quarter: 2019Q1

REPORT INFORMATION
  Report Type: Spontaneous
  Country: US (occurrence: US)
  Receive Date: 20190218
  Receipt Date: 20190218
  Transmission Date: 20190418
  Serious: Yes (Other)
  Sender: FDA-Public Use
  Company Number: None

PATIENT
  Age: 8 Week
  Sex: Male

DRUGS (1)
  1. GRIPE WATER [Suspect]
     Active Substance: DIETARY SUPPLEMENT

REACTIONS (1)
  - Dysphagia [None]

NARRATIVE: CASE EVENT DATE: 20181226
